FAERS Safety Report 24732386 (Version 1)
Quarter: 2024Q4

REPORT INFORMATION
  Report Type: Spontaneous
  Country: US (occurrence: None)
  Receive Date: 20241213
  Receipt Date: 20241213
  Transmission Date: 20250115
  Serious: No
  Sender: Public
  Company Number: None

PATIENT
  Age: 71 Year
  Sex: Female
  Weight: 130.5 kg

DRUGS (4)
  1. SPIRONOLACTONE [Suspect]
     Active Substance: SPIRONOLACTONE
     Indication: Oedema
     Dosage: 1 TABLET DAILY ORAL
     Route: 048
     Dates: start: 20241120, end: 20241205
  2. VITAMINS [Concomitant]
     Active Substance: VITAMINS
  3. VITAMIN D3 [Concomitant]
     Active Substance: CHOLECALCIFEROL
  4. iron supp [Concomitant]

REACTIONS (1)
  - Dysgeusia [None]

NARRATIVE: CASE EVENT DATE: 20241125
